FAERS Safety Report 16298082 (Version 1)
Quarter: 2019Q2

REPORT INFORMATION
  Report Type: Spontaneous
  Country: US (occurrence: US)
  Receive Date: 20190510
  Receipt Date: 20190510
  Transmission Date: 20190711
  Serious: Yes (Other)
  Sender: FDA-Public Use
  Company Number: US-ROCHE-2312387

PATIENT
  Age: 72 Year
  Sex: Male
  Weight: 80.81 kg

DRUGS (1)
  1. RITUXAN [Suspect]
     Active Substance: RITUXIMAB
     Indication: RHEUMATOID ARTHRITIS
     Route: 042
     Dates: start: 20180629, end: 20180629

REACTIONS (1)
  - Transient acantholytic dermatosis [Not Recovered/Not Resolved]

NARRATIVE: CASE EVENT DATE: 201807
